FAERS Safety Report 13135117 (Version 1)
Quarter: 2017Q1

REPORT INFORMATION
  Report Type: Spontaneous
  Country: SA (occurrence: SA)
  Receive Date: 20170120
  Receipt Date: 20170120
  Transmission Date: 20170428
  Serious: Yes (Death)
  Sender: FDA-Public Use
  Company Number: SA-BIOMARINAP-SA-2017-112459

PATIENT
  Age: 8 Year
  Sex: Male
  Weight: 20 kg

DRUGS (1)
  1. ALDURAZYME [Suspect]
     Active Substance: LARONIDASE
     Indication: MUCOPOLYSACCHARIDOSIS I
     Dosage: UNK UNK, QOW
     Route: 042
     Dates: start: 201312, end: 20161221

REACTIONS (3)
  - Respiratory depression [Fatal]
  - Off label use [Unknown]
  - Chest discomfort [Fatal]

NARRATIVE: CASE EVENT DATE: 20170101
